FAERS Safety Report 7408692-X (Version None)
Quarter: 2011Q1

REPORT INFORMATION
  Report Type: 
  Country: None (occurrence: None)
  Receive Date: 20110301
  Receipt Date: 20100826
  Transmission Date: 20110831
  Serious: Yes (Hospitalization)
  Sender: FDA-Public Use
  Company Number: US-JNJFOC-20100805420

PATIENT
  Age: 93 Year
  Sex: Male

DRUGS (6)
  1. LOPRESSOR [Concomitant]
  2. DITROPAN [Concomitant]
  3. MACULAR DEGENERATION MEDICATION (OPHTHALMOLOGICALS) [Concomitant]
  4. XANAX [Concomitant]
  5. MOTRIN [Suspect]
     Indication: ARTHRALGIA
     Dates: start: 20100111, end: 20100114
  6. MICARDIS [Concomitant]

REACTIONS (1)
  - GASTRIC HAEMORRHAGE [None]
